FAERS Safety Report 9100178 (Version 2)
Quarter: 2013Q1

REPORT INFORMATION
  Report Type: Spontaneous
  Country: US (occurrence: US)
  Receive Date: 20130215
  Receipt Date: 20130308
  Transmission Date: 20140127
  Serious: Yes (Other)
  Sender: FDA-Public Use
  Company Number: US-PERRIGO-13US001284

PATIENT
  Sex: Male
  Weight: 126.98 kg

DRUGS (1)
  1. PHENYLEPHRINE HYDROCHLORIDE 1% 648 [Suspect]
     Indication: NASAL CONGESTION
     Dosage: 1 SPRAY EACH NOSTRIL, AT LEAST 10 TIMES A DAY
     Route: 045
     Dates: start: 2010

REACTIONS (4)
  - Condition aggravated [Recovering/Resolving]
  - Incorrect drug administration duration [Unknown]
  - Underdose [Unknown]
  - Inappropriate schedule of drug administration [Not Recovered/Not Resolved]
